FAERS Safety Report 9064578 (Version 2)
Quarter: 2013Q1

REPORT INFORMATION
  Report Type: Spontaneous
  Country: BR (occurrence: BR)
  Receive Date: 20130128
  Receipt Date: 20130312
  Transmission Date: 20140127
  Serious: Yes (Other)
  Sender: FDA-Public Use
  Company Number: PHHY2012BR036116

PATIENT
  Age: 30 Year
  Sex: Female
  Weight: 73 kg

DRUGS (1)
  1. ZOMETA [Suspect]
     Indication: BONE NEOPLASM
     Dosage: 4 MG / 5 ML, (EVERY 21 DAYS)
     Route: 042
     Dates: start: 200908

REACTIONS (3)
  - Uterine hypertonus [Recovered/Resolved]
  - Exposure during pregnancy [Unknown]
  - Delivery [Unknown]
